FAERS Safety Report 5419538-3 (Version None)
Quarter: 2007Q3

REPORT INFORMATION
  Report Type: 
  Country: None (occurrence: None)
  Receive Date: 20070817
  Receipt Date: 20070817
  Transmission Date: 20080115
  Serious: Yes (Life-Threatening, Hospitalization, Disabling)
  Sender: FDA-Public Use
  Company Number: None

PATIENT
  Age: 55 Year
  Sex: Male
  Weight: 79.3795 kg

DRUGS (2)
  1. PRILOSEC [Suspect]
     Indication: DYSPEPSIA
     Dosage: 1 DAILY PO
     Route: 048
     Dates: start: 20070101, end: 20070201
  2. PRILOSEC [Suspect]
     Indication: DYSPEPSIA
     Dosage: 1 DAILY PO
     Route: 048
     Dates: start: 20070201, end: 20070201

REACTIONS (3)
  - CARDIO-RESPIRATORY ARREST [None]
  - CORONARY ARTERY OCCLUSION [None]
  - MYOCARDIAL INFARCTION [None]
